FAERS Safety Report 18140023 (Version 1)
Quarter: 2020Q3

REPORT INFORMATION
  Report Type: Other
  Country: NO (occurrence: NO)
  Receive Date: 20200812
  Receipt Date: 20200812
  Transmission Date: 20201103
  Serious: Yes (Other)
  Sender: FDA-Public Use
  Company Number: NO-ROCHE-2657961

PATIENT
  Age: 40 Year
  Sex: Female

DRUGS (1)
  1. RITUXIMAB. [Suspect]
     Active Substance: RITUXIMAB
     Indication: MULTIPLE SCLEROSIS
     Route: 065

REACTIONS (6)
  - C-reactive protein increased [Recovered/Resolved]
  - Product use in unapproved indication [Unknown]
  - Lyme disease [Recovered/Resolved]
  - Pyrexia [Unknown]
  - Fatigue [Unknown]
  - Pain [Unknown]
